FAERS Safety Report 4417575-9 (Version None)
Quarter: 2004Q3

REPORT INFORMATION
  Report Type: 
  Country: None (occurrence: None)
  Receive Date: 20040803
  Receipt Date: 20040723
  Transmission Date: 20050211
  Serious: Yes (Hospitalization)
  Sender: FDA-Public Use
  Company Number: GBWYE931327JUL04

PATIENT
  Age: 69 Year
  Sex: Female

DRUGS (5)
  1. ADVIL [Suspect]
     Indication: ARTHRITIS
     Dosage: 400 MG 3X PER 1 DAY ORAL; 600 MG 3X PER 1 DAY
     Route: 048
     Dates: start: 20020101, end: 20040702
  2. ADVIL [Suspect]
     Indication: ARTHRITIS
     Dosage: 400 MG 3X PER 1 DAY ORAL; 600 MG 3X PER 1 DAY
     Route: 048
     Dates: start: 19860101
  3. VIOXX [Suspect]
     Indication: ARTHRITIS
     Dosage: 25 MG 1X PER 1 DAY ORAL
     Route: 048
     Dates: start: 20040622, end: 20040702
  4. LIPITOR [Concomitant]
  5. ACETAMINOPHEN [Concomitant]

REACTIONS (6)
  - CIRCULATORY COLLAPSE [None]
  - DYSPNOEA [None]
  - GASTROINTESTINAL ULCER [None]
  - HAEMOGLOBIN DECREASED [None]
  - OESOPHAGITIS [None]
  - SYNCOPE [None]
